FAERS Safety Report 5146143-9 (Version None)
Quarter: 2006Q4

REPORT INFORMATION
  Report Type: 
  Country: None (occurrence: None)
  Receive Date: 20061108
  Receipt Date: 20061023
  Transmission Date: 20070319
  Serious: Yes (Other)
  Sender: FDA-Public Use
  Company Number: LV-SANOFI-SYNTHELABO-A01200608946

PATIENT
  Age: 65 Year
  Sex: Male

DRUGS (3)
  1. PIRACETAM [Concomitant]
     Indication: CEREBRAL THROMBOSIS
     Route: 048
  2. SERMION [Concomitant]
     Indication: CEREBRAL THROMBOSIS
     Route: 048
  3. PLAVIX [Suspect]
     Indication: CEREBRAL THROMBOSIS
     Route: 048
     Dates: start: 20060406, end: 20060508

REACTIONS (4)
  - ANOREXIA [None]
  - HAEMORRHAGE [None]
  - PAIN IN EXTREMITY [None]
  - VASCULITIS [None]
